FAERS Safety Report 8760904 (Version 7)
Quarter: 2014Q1

REPORT INFORMATION
  Report Type: Spontaneous
  Country: US (occurrence: US)
  Receive Date: 20120830
  Receipt Date: 20140228
  Transmission Date: 20141002
  Serious: No
  Sender: FDA-Public Use
  Company Number: US-JNJFOC-20120807436

PATIENT
  Age: 58 Year
  Sex: Female
  Weight: 63.5 kg

DRUGS (3)
  1. INVEGA SUSTENNA [Suspect]
     Indication: SCHIZOPHRENIA
     Route: 030
     Dates: start: 201109
  2. CORTISONE [Suspect]
     Indication: PRURITUS
     Route: 061
  3. SYNTHROID [Concomitant]
     Route: 065

REACTIONS (7)
  - Prurigo [Recovering/Resolving]
  - Skin lesion [Not Recovered/Not Resolved]
  - Pruritus [Not Recovered/Not Resolved]
  - Scab [Not Recovered/Not Resolved]
  - Scar [Not Recovered/Not Resolved]
  - Acne [Not Recovered/Not Resolved]
  - Rash erythematous [Not Recovered/Not Resolved]
